FAERS Safety Report 19681317 (Version 1)
Quarter: 2021Q3

REPORT INFORMATION
  Report Type: Spontaneous
  Country: US (occurrence: US)
  Receive Date: 20210810
  Receipt Date: 20210810
  Transmission Date: 20211014
  Serious: No
  Sender: FDA-Public Use
  Company Number: US-IGSA-BIG0011640

PATIENT
  Sex: Male

DRUGS (15)
  1. VITAMIN B [Concomitant]
     Active Substance: VITAMIN B
  2. ZINC. [Concomitant]
     Active Substance: ZINC
     Dosage: 50 MILLIGRAM
  3. IMURAN [Concomitant]
     Active Substance: AZATHIOPRINE
     Dosage: 50 MILLIGRAM
  4. NARATRIPTAN [Concomitant]
     Active Substance: NARATRIPTAN HYDROCHLORIDE
     Dosage: 2.5 MILLIGRAM
  5. FINASTERIDE. [Concomitant]
     Active Substance: FINASTERIDE
  6. FLUTICASONE. [Concomitant]
     Active Substance: FLUTICASONE
     Dosage: 50 MICROGRAM
  7. CALCIUM [Concomitant]
     Active Substance: CALCIUM
     Dosage: 600 MILLIGRAM
     Route: 048
  8. MESTINON [Concomitant]
     Active Substance: PYRIDOSTIGMINE BROMIDE
     Dosage: 60 MILLIGRAM
  9. ASPIRIN 81 [Concomitant]
     Active Substance: ASPIRIN
  10. NASAL CLEAN [Concomitant]
  11. PREDNISOLONE. [Concomitant]
     Active Substance: PREDNISOLONE
     Dosage: 15 MILLIGRAM
  12. VITAMIN D3 [Concomitant]
     Active Substance: CHOLECALCIFEROL
  13. GAMUNEX?C [Suspect]
     Active Substance: HUMAN IMMUNOGLOBULIN G
     Indication: MYASTHENIA GRAVIS
     Dosage: 80 GRAM, Q.3WK.
     Route: 042
     Dates: start: 2014
  14. PANTOPRAZOLE [Concomitant]
     Active Substance: PANTOPRAZOLE
     Dosage: 40 MILLIGRAM
  15. ZYRTEC [Concomitant]
     Active Substance: CETIRIZINE HYDROCHLORIDE

REACTIONS (3)
  - Feeling abnormal [Recovered/Resolved]
  - Blood pressure increased [Recovered/Resolved]
  - Headache [Recovered/Resolved]
